FAERS Safety Report 4294869-1 (Version None)
Quarter: 2004Q1

REPORT INFORMATION
  Report Type: 
  Country: None (occurrence: None)
  Receive Date: 20040216
  Receipt Date: 20030131
  Transmission Date: 20041129
  Serious: No
  Sender: FDA-Public Use
  Company Number: US-GLAXOSMITHKLINE-A0394905A

PATIENT
  Sex: Female

DRUGS (5)
  1. LAMICTAL [Suspect]
     Indication: EPILEPSY
     Dosage: 100MG TWICE PER DAY
     Route: 048
     Dates: start: 20020801
  2. ANTIHISTAMINE [Concomitant]
  3. BLOOD PRESSURE MEDICATION [Concomitant]
  4. PREMARIN [Concomitant]
  5. ARTHRITIS MEDICATION [Concomitant]

REACTIONS (3)
  - HYPERAESTHESIA [None]
  - PAROSMIA [None]
  - PRURITUS [None]
